FAERS Safety Report 14703627 (Version 1)
Quarter: 2018Q2

REPORT INFORMATION
  Report Type: Report from Study
  Country: JP (occurrence: JP)
  Receive Date: 20180402
  Receipt Date: 20180402
  Transmission Date: 20180711
  Serious: Yes (Life-Threatening)
  Sender: FDA-Public Use
  Company Number: JP-BRISTOL-MYERS SQUIBB COMPANY-10902104

PATIENT
  Age: 24 Year
  Sex: Male

DRUGS (14)
  1. STAVUDINE. [Suspect]
     Active Substance: STAVUDINE
     Indication: ACQUIRED IMMUNODEFICIENCY SYNDROME
     Dosage: AND 02 DEC 1999 TO 22 MAR 2001  60 MG 09 APRIL 2001 - ONGOING
     Route: 048
     Dates: start: 19991020
  2. CLARITHROMYCIN. [Concomitant]
     Active Substance: CLARITHROMYCIN
     Indication: MYCOBACTERIUM TEST
     Dosage: 1 G, QD
     Route: 048
     Dates: end: 20000215
  3. GANCICLOVIR. [Concomitant]
     Active Substance: GANCICLOVIR
     Indication: PRODUCT USED FOR UNKNOWN INDICATION
     Dosage: UNK
     Route: 065
     Dates: start: 20000612, end: 20000702
  4. NEVIRAPINE. [Concomitant]
     Active Substance: NEVIRAPINE
     Indication: PRODUCT USED FOR UNKNOWN INDICATION
     Dosage: 200 MG, UNK
     Route: 065
     Dates: end: 20010322
  5. AMPRENAVIR [Suspect]
     Active Substance: AMPRENAVIR
     Indication: ACQUIRED IMMUNODEFICIENCY SYNDROME
     Dosage: 2.4 G, QD
     Route: 048
     Dates: start: 19991020, end: 19991102
  6. SAQUINAVIR [Concomitant]
     Active Substance: SAQUINAVIR
     Indication: HIV INFECTION
     Dosage: 1200MG/DAY 07 DEC 99-22 MAR 01.
     Route: 048
     Dates: start: 19991202, end: 19991206
  7. CIDOFOVIR. [Concomitant]
     Active Substance: CIDOFOVIR
     Indication: CYTOMEGALOVIRUS INFECTION
     Dosage: STOP DATE ALSO ^REPORTED AS 15 FEB 00^
     Route: 065
     Dates: end: 20000529
  8. PENTAMIDINE [Concomitant]
     Active Substance: PENTAMIDINE
     Indication: ANTIFUNGAL PROPHYLAXIS
     Dosage: UNK
     Route: 065
     Dates: start: 19991108
  9. EFAVIRENZ. [Suspect]
     Active Substance: EFAVIRENZ
     Indication: ACQUIRED IMMUNODEFICIENCY SYNDROME
     Dosage: 02DEC99 - 22FEB01 + 09APRIL01 - 25OCT01; 400MG 26OCT01-12DEC01 AND 200MG 13DEC01
     Route: 048
     Dates: start: 19991020
  10. VIDEX [Suspect]
     Active Substance: DIDANOSINE
     Indication: ACQUIRED IMMUNODEFICIENCY SYNDROME
     Dosage: AND 02 DEC 1999 TO 22 MAR 2001  325 MG 09APRIL01 -ONGOING
     Route: 048
     Dates: start: 19991020
  11. KOGENATE [Concomitant]
     Active Substance: ANTIHEMOPHILIC FACTOR, HUMAN RECOMBINANT
     Indication: PRODUCT USED FOR UNKNOWN INDICATION
     Dosage: DOSE = 1000 UNITS
     Route: 058
     Dates: start: 19991101, end: 20000612
  12. RITONAVIR. [Concomitant]
     Active Substance: RITONAVIR
     Indication: PRODUCT USED FOR UNKNOWN INDICATION
     Dosage: CAPSULES TO 02 MAR 00-SOLUTION FROM 03 MAR 00
     Route: 048
     Dates: start: 19991202, end: 20000322
  13. SPARFLOXACIN [Concomitant]
     Active Substance: SPARFLOXACIN
     Indication: PRODUCT USED FOR UNKNOWN INDICATION
     Dosage: 200 MG, QD
     Route: 048
     Dates: start: 19990215, end: 20000215
  14. PROBENECID. [Concomitant]
     Active Substance: PROBENECID
     Indication: PRODUCT USED FOR UNKNOWN INDICATION
     Dosage: UNK
     Route: 065
     Dates: start: 19991101, end: 20000329

REACTIONS (2)
  - Anaemia [Recovered/Resolved]
  - Hypokalaemia [Recovering/Resolving]

NARRATIVE: CASE EVENT DATE: 19991102
